FAERS Safety Report 13028912 (Version 3)
Quarter: 2017Q1

REPORT INFORMATION
  Report Type: Report from Study
  Country: US (occurrence: US)
  Receive Date: 20161214
  Receipt Date: 20170116
  Transmission Date: 20170428
  Serious: Yes (Other)
  Sender: FDA-Public Use
  Company Number: US-AMGEN-USASL2016173132

PATIENT
  Age: 60 Year
  Sex: Female

DRUGS (2)
  1. ENBREL [Suspect]
     Active Substance: ETANERCEPT
     Indication: PSORIASIS
     Dosage: 50 MG, 2 TIMES/WK, MONDAYS AND THURSDAYS FOR THREE MONTHS
     Route: 065
     Dates: start: 20170102
  2. ENBREL [Suspect]
     Active Substance: ETANERCEPT
     Indication: PSORIATIC ARTHROPATHY
     Dosage: 50 MG, 2 TIMES/WK, MONDAYS AND THURSDAYS FOR THREE MONTHS
     Route: 065
     Dates: start: 201611, end: 20161216

REACTIONS (9)
  - Sinusitis [Unknown]
  - Therapeutic response unexpected [Unknown]
  - Chest discomfort [Unknown]
  - Headache [Unknown]
  - Pruritus [Unknown]
  - Drug dose omission [Unknown]
  - Constipation [Recovering/Resolving]
  - Pain [Unknown]
  - Injection site pain [Unknown]

NARRATIVE: CASE EVENT DATE: 2016
